FAERS Safety Report 14656030 (Version 2)
Quarter: 2018Q2

REPORT INFORMATION
  Report Type: Report from Study
  Country: None (occurrence: BR)
  Receive Date: 20180319
  Receipt Date: 20180611
  Transmission Date: 20180711
  Serious: Yes (Other)
  Sender: FDA-Public Use
  Company Number: BR-ABBVIE-17K-020-2177511-00

PATIENT
  Age: 49 Year
  Sex: Female
  Weight: 99 kg

DRUGS (7)
  1. BUP [Concomitant]
     Active Substance: BUPROPION HYDROCHLORIDE
     Indication: PRODUCT USED FOR UNKNOWN INDICATION
  2. AEROLIN [Concomitant]
     Active Substance: ALBUTEROL
     Indication: ASTHMA
  3. RIVOTRIL [Concomitant]
     Active Substance: CLONAZEPAM
     Indication: SEDATIVE THERAPY
  4. RIVOTRIL [Concomitant]
     Active Substance: CLONAZEPAM
     Indication: PROPHYLAXIS
  5. HUMIRA [Suspect]
     Active Substance: ADALIMUMAB
     Indication: CROHN^S DISEASE
     Dosage: WEEK 0,LOADING DOSE
     Route: 058
     Dates: start: 20170202, end: 20170202
  6. HUMIRA [Suspect]
     Active Substance: ADALIMUMAB
     Dosage: WEEK 2,LOADING DOSE
     Route: 058
     Dates: start: 2017, end: 2017
  7. HUMIRA [Suspect]
     Active Substance: ADALIMUMAB
     Dosage: MAINTENANCE DOSE
     Route: 058

REACTIONS (5)
  - Asthmatic crisis [Recovered/Resolved]
  - Fatigue [Not Recovered/Not Resolved]
  - Nasal congestion [Not Recovered/Not Resolved]
  - Influenza [Not Recovered/Not Resolved]
  - Injection site urticaria [Unknown]

NARRATIVE: CASE EVENT DATE: 2017
